FAERS Safety Report 11565011 (Version 1)
Quarter: 2015Q3

REPORT INFORMATION
  Report Type: Report from Study
  Country: US (occurrence: US)
  Receive Date: 20150928
  Receipt Date: 20150928
  Transmission Date: 20151125
  Serious: No
  Sender: FDA-Public Use
  Company Number: US-EXELIXIS-CABO-14004875

PATIENT
  Sex: Male

DRUGS (6)
  1. METOPROLOL [Concomitant]
     Active Substance: METOPROLOL
  2. AMLODIPINE [Concomitant]
     Active Substance: AMLODIPINE BESYLATE
  3. LOSARTAN. [Concomitant]
     Active Substance: LOSARTAN
  4. COMETRIQ [Suspect]
     Active Substance: CABOZANTINIB S-MALATE
     Indication: RENAL CANCER
     Dosage: 140 MG, QD
     Route: 048
     Dates: start: 20140702, end: 201410
  5. CLONIDINE. [Concomitant]
     Active Substance: CLONIDINE
  6. COMETRIQ [Suspect]
     Active Substance: CABOZANTINIB S-MALATE
     Dosage: 80 MG, QD
     Route: 048
     Dates: start: 201410

REACTIONS (9)
  - Pruritus [Unknown]
  - Pain in extremity [Unknown]
  - Rash [Unknown]
  - Palmar-plantar erythrodysaesthesia syndrome [Unknown]
  - Adverse drug reaction [Unknown]
  - Nausea [Unknown]
  - Peripheral swelling [Unknown]
  - Diarrhoea [Unknown]
  - Off label use [Unknown]

NARRATIVE: CASE EVENT DATE: 2014
